FAERS Safety Report 20709488 (Version 1)
Quarter: 2022Q2

REPORT INFORMATION
  Report Type: Spontaneous
  Country: DK (occurrence: None)
  Receive Date: 20220414
  Receipt Date: 20220414
  Transmission Date: 20220721
  Serious: Yes (Hospitalization, Other)
  Sender: FDA-Public Use
  Company Number: 2022A142458

PATIENT
  Age: 24 Year
  Sex: Female

DRUGS (3)
  1. BUDESONIDE [Suspect]
     Active Substance: BUDESONIDE
     Indication: Asthma
     Route: 055
  2. FLUTICASONE FUROATE [Suspect]
     Active Substance: FLUTICASONE FUROATE
     Indication: Sinusitis
     Route: 065
  3. MOMETASONE FUROATE [Suspect]
     Active Substance: MOMETASONE FUROATE
     Indication: Dermatitis
     Dosage: 0.1%, 3-7 TIMES/WEEK
     Route: 065

REACTIONS (6)
  - Condition aggravated [Unknown]
  - Adrenal insufficiency [Not Recovered/Not Resolved]
  - Tremor [Unknown]
  - Loss of personal independence in daily activities [Unknown]
  - Infection [Unknown]
  - Cold sweat [Unknown]
